FAERS Safety Report 24445152 (Version 1)
Quarter: 2024Q4

REPORT INFORMATION
  Report Type: Report from Study
  Country: US (occurrence: US)
  Receive Date: 20241016
  Receipt Date: 20241016
  Transmission Date: 20250115
  Serious: Yes (Other)
  Sender: ABBVIE
  Company Number: US-ABBVIE-5964283

PATIENT
  Sex: Male

DRUGS (23)
  1. VENCLEXTA [Suspect]
     Active Substance: VENETOCLAX
     Indication: Acute myeloid leukaemia
     Route: 048
  2. ALTEPLASE [Concomitant]
     Active Substance: ALTEPLASE
     Indication: Product used for unknown indication
  3. TENECTEPLASE [Concomitant]
     Active Substance: TENECTEPLASE
     Indication: Product used for unknown indication
  4. PEGINTERFERON ALFA-2A [Concomitant]
     Active Substance: PEGINTERFERON ALFA-2A
     Indication: Inflammation
  5. XOLAIR [Concomitant]
     Active Substance: OMALIZUMAB
     Indication: Product used for unknown indication
  6. RITUXAN [Concomitant]
     Active Substance: RITUXIMAB
     Indication: Product used for unknown indication
  7. ACTEMRA [Concomitant]
     Active Substance: TOCILIZUMAB
     Indication: Product used for unknown indication
  8. BONIVA [Concomitant]
     Active Substance: IBANDRONATE SODIUM
     Indication: Product used for unknown indication
  9. AVASTIN [Concomitant]
     Active Substance: BEVACIZUMAB
     Indication: Product used for unknown indication
  10. XELODA [Concomitant]
     Active Substance: CAPECITABINE
     Indication: Product used for unknown indication
  11. ERLOTINIB [Concomitant]
     Active Substance: ERLOTINIB
     Indication: Product used for unknown indication
  12. TARCEVA [Concomitant]
     Active Substance: ERLOTINIB HYDROCHLORIDE
     Indication: Product used for unknown indication
  13. PERJETA [Concomitant]
     Active Substance: PERTUZUMAB
     Indication: Product used for unknown indication
  14. HERCEPTIN [Concomitant]
     Active Substance: TRASTUZUMAB
     Indication: Product used for unknown indication
  15. ZELBORAF [Concomitant]
     Active Substance: VEMURAFENIB
     Indication: Product used for unknown indication
  16. ERIVEDGE [Concomitant]
     Active Substance: VISMODEGIB
     Indication: Product used for unknown indication
  17. LUCENTIS [Concomitant]
     Active Substance: RANIBIZUMAB
     Indication: Product used for unknown indication
  18. PULMOZYME [Concomitant]
     Active Substance: DORNASE ALFA
     Indication: Product used for unknown indication
  19. CELLCEPT [Concomitant]
     Active Substance: MYCOPHENOLATE MOFETIL
     Indication: Product used for unknown indication
  20. VALCYTE [Concomitant]
     Active Substance: VALGANCICLOVIR HYDROCHLORIDE
     Indication: Product used for unknown indication
  21. FUZEON [Concomitant]
     Active Substance: ENFUVIRTIDE
     Indication: Product used for unknown indication
  22. RIBAVIRIN [Concomitant]
     Active Substance: RIBAVIRIN
     Indication: Product used for unknown indication
  23. FORTOVASE [Concomitant]
     Active Substance: SAQUINAVIR
     Indication: Product used for unknown indication

REACTIONS (1)
  - Transfusion [Unknown]
